FAERS Safety Report 24059043 (Version 4)
Quarter: 2024Q3

REPORT INFORMATION
  Report Type: Spontaneous
  Country: JP (occurrence: JP)
  Receive Date: 20240708
  Receipt Date: 20240923
  Transmission Date: 20241017
  Serious: Yes (Death, Hospitalization, Other)
  Sender: EXELIXIS
  Company Number: JP-TAKEDA-2024TJP010123

PATIENT
  Age: 7 Decade
  Sex: Male

DRUGS (1)
  1. CABOMETYX [Suspect]
     Active Substance: CABOZANTINIB S-MALATE
     Indication: Renal cell carcinoma
     Dosage: UNK
     Route: 048
     Dates: start: 202406

REACTIONS (3)
  - Lung disorder [Recovering/Resolving]
  - Renal cell carcinoma [Unknown]
  - Pneumonia aspiration [Fatal]
